FAERS Safety Report 8175308-7 (Version None)
Quarter: 2012Q1

REPORT INFORMATION
  Report Type: 
  Country: None (occurrence: None)
  Receive Date: 20120229
  Receipt Date: 20120222
  Transmission Date: 20120608
  Serious: Yes (Hospitalization)
  Sender: FDA-Public Use
  Company Number: PHHY2011CA11383

PATIENT
  Sex: Female

DRUGS (13)
  1. SPIRIVA [Concomitant]
     Dosage: UNK
  2. POTASSIUM CHLORIDE [Concomitant]
     Dosage: UNK
  3. ZOLEDRONOC ACID [Suspect]
     Indication: OSTEOPOROSIS
     Dosage: 5 MG, UNK
     Dates: start: 20100218
  4. VENTOLIN [Concomitant]
     Dosage: UNK
  5. LEFLUNOMIDE [Concomitant]
     Dosage: 20 MG, QD
  6. DIGOXIN [Concomitant]
     Dosage: 0.062 MG, QD
  7. ARAVA [Concomitant]
     Dosage: UNK
  8. ADVAIR DISKUS 100/50 [Concomitant]
     Dosage: 250 UG, BID
  9. ACETAMINOPHEN [Concomitant]
     Dosage: UNK
  10. VITAMIN D [Concomitant]
     Dosage: UNK
  11. ALTACE [Concomitant]
     Dosage: 10 MG, QD
  12. RAMIPRIL [Concomitant]
     Dosage: UNK
  13. METOPROLOL SUCCINATE [Concomitant]
     Dosage: 50 MG, BID

REACTIONS (15)
  - BACK PAIN [None]
  - HYPOKALAEMIA [None]
  - HEART RATE IRREGULAR [None]
  - INTERNATIONAL NORMALISED RATIO INCREASED [None]
  - HYPONATRAEMIA [None]
  - RHEUMATOID ARTHRITIS [None]
  - ATRIAL FIBRILLATION [None]
  - BLOOD ALKALINE PHOSPHATASE INCREASED [None]
  - CARDIAC FAILURE CONGESTIVE [None]
  - TACHYPNOEA [None]
  - TACHYARRHYTHMIA [None]
  - ATRIAL TACHYCARDIA [None]
  - CHRONIC OBSTRUCTIVE PULMONARY DISEASE [None]
  - CREPITATIONS [None]
  - WHITE BLOOD CELLS URINE POSITIVE [None]
